FAERS Safety Report 9234944 (Version 1)
Quarter: 2013Q2

REPORT INFORMATION
  Report Type: Spontaneous
  Country: CH (occurrence: CH)
  Receive Date: 20130416
  Receipt Date: 20130416
  Transmission Date: 20140414
  Serious: Yes (Hospitalization)
  Sender: FDA-Public Use
  Company Number: CH-TEVA-396730ISR

PATIENT
  Age: 89 Year
  Sex: Female

DRUGS (14)
  1. OEDEMEX [Suspect]
     Indication: CARDIAC FAILURE
     Dosage: 80 MILLIGRAM DAILY;
     Route: 048
     Dates: start: 20121005, end: 20130320
  2. DIGOXIN [Interacting]
     Indication: ATRIAL FIBRILLATION
     Dosage: .25 MILLIGRAM DAILY;
     Route: 048
     Dates: start: 20130228, end: 20130320
  3. ALDACTONE [Interacting]
     Indication: CARDIAC FAILURE
     Dosage: 50 MILLIGRAM DAILY;
     Route: 048
     Dates: start: 20130228, end: 20130320
  4. MOTILIUM [Concomitant]
     Indication: NAUSEA
     Dosage: 30 MILLIGRAM DAILY;
     Route: 048
     Dates: start: 20130319, end: 20130320
  5. MOTILIUM [Concomitant]
     Indication: VOMITING
  6. ASPIRIN [Concomitant]
     Indication: ESSENTIAL HYPERTENSION
     Dosage: 100 MILLIGRAM DAILY;
     Route: 048
  7. SIMCORA [Concomitant]
     Indication: HYPERLIPIDAEMIA
     Dosage: 20 MILLIGRAM DAILY;
     Route: 048
  8. DAFALGAN [Concomitant]
     Indication: PAIN
     Dosage: 4 GRAM DAILY;
     Route: 048
  9. CITALOPRAM ECOSOL [Concomitant]
     Indication: DEPRESSION
     Dosage: 20 MILLIGRAM DAILY;
     Route: 048
  10. QUETIAPINE SANDOZ [Concomitant]
     Indication: ANXIETY DISORDER
     Dosage: 75 MILLIGRAM DAILY;
     Route: 048
  11. DONEPEZIL MEPHA [Concomitant]
     Indication: DEMENTIA
     Dosage: 10 MILLIGRAM DAILY;
     Route: 048
  12. PRAMIPEXOLE [Concomitant]
     Indication: AKATHISIA
     Dosage: .125 MILLIGRAM DAILY;
     Route: 048
  13. EUTHYROX [Concomitant]
     Indication: HYPOTHYROIDISM
     Dosage: .1 MILLIGRAM DAILY;
     Route: 048
  14. CALCIMAGON D3 [Concomitant]
     Indication: PROPHYLAXIS
     Dosage: 1 DOSAGE FORMS DAILY;
     Route: 048

REACTIONS (10)
  - Renal failure acute [Recovered/Resolved]
  - Dehydration [Recovered/Resolved]
  - Hyperkalaemia [Recovered/Resolved]
  - Toxicity to various agents [Unknown]
  - Therapeutic response increased [Recovered/Resolved]
  - Nausea [Recovered/Resolved]
  - Vomiting [Recovered/Resolved]
  - Asthenia [Recovering/Resolving]
  - Drug interaction [Unknown]
  - Medication error [Recovered/Resolved]
